FAERS Safety Report 14285330 (Version 2)
Quarter: 2018Q1

REPORT INFORMATION
  Report Type: Spontaneous
  Country: US (occurrence: US)
  Receive Date: 20171214
  Receipt Date: 20180209
  Transmission Date: 20180509
  Serious: No
  Sender: FDA-Public Use
  Company Number: US-PFIZER INC-2017532780

PATIENT
  Age: 61 Year
  Sex: Female
  Weight: 90 kg

DRUGS (2)
  1. ALPRAZOLAM. [Suspect]
     Active Substance: ALPRAZOLAM
     Indication: AGITATION
     Dosage: 1/2-1 0.5 MG TABLET, DAILY
     Dates: start: 201710, end: 20171203
  2. ESTRADIOL. [Suspect]
     Active Substance: ESTRADIOL
     Indication: MENOPAUSE
     Dosage: 1 MG, 1X/DAY
     Dates: start: 20171204

REACTIONS (3)
  - Palpitations [Not Recovered/Not Resolved]
  - Product use in unapproved indication [Unknown]
  - Presyncope [Unknown]

NARRATIVE: CASE EVENT DATE: 20171211
